FAERS Safety Report 22025204 (Version 1)
Quarter: 2023Q1

REPORT INFORMATION
  Report Type: Spontaneous
  Country: US (occurrence: None)
  Receive Date: 20230223
  Receipt Date: 20230223
  Transmission Date: 20230417
  Serious: No
  Sender: FDA-Public Use
  Company Number: US-ROCHE-3099895

PATIENT
  Sex: Female

DRUGS (14)
  1. XOLAIR [Suspect]
     Active Substance: OMALIZUMAB
     Indication: Urticaria
     Dosage: (STRENGTH; 150MG/ML)
     Route: 058
     Dates: start: 20220309
  2. AZELASTINE [Concomitant]
     Active Substance: AZELASTINE
  3. CELEBREX [Concomitant]
     Active Substance: CELECOXIB
  4. CLEMASTINE [Concomitant]
     Active Substance: CLEMASTINE
  5. DULOXETINE [Concomitant]
     Active Substance: DULOXETINE
  6. EPIPEN [Concomitant]
     Active Substance: EPINEPHRINE
  7. FLAGYL [Concomitant]
     Active Substance: METRONIDAZOLE\METRONIDAZOLE HYDROCHLORIDE
  8. GABAPENTIN [Concomitant]
     Active Substance: GABAPENTIN
  9. HUMIRA [Concomitant]
     Active Substance: ADALIMUMAB
  10. LOVENOX [Concomitant]
     Active Substance: ENOXAPARIN SODIUM
  11. PROAIR HFA [Concomitant]
     Active Substance: ALBUTEROL SULFATE
  12. QVAR REDIHALER [Concomitant]
     Active Substance: BECLOMETHASONE DIPROPIONATE
  13. SULFASALAZINE [Concomitant]
     Active Substance: SULFASALAZINE
  14. SYNTHROID [Concomitant]
     Active Substance: LEVOTHYROXINE SODIUM

REACTIONS (2)
  - Off label use [Unknown]
  - No adverse event [Unknown]
